FAERS Safety Report 25990225 (Version 1)
Quarter: 2025Q4

REPORT INFORMATION
  Report Type: Report from Study
  Country: MX (occurrence: MX)
  Receive Date: 20251103
  Receipt Date: 20251103
  Transmission Date: 20260118
  Serious: Yes (Hospitalization, Other)
  Sender: GENMAB
  Company Number: MX-ABBVIE-6499693

PATIENT
  Age: 47 Year
  Sex: Male
  Weight: 58 kg

DRUGS (4)
  1. EPKINLY [Suspect]
     Active Substance: EPCORITAMAB-BYSP
     Indication: Diffuse large B-cell lymphoma
     Dosage: 48 MILLIGRAM, WEEKLY
     Route: 058
     Dates: start: 20250829, end: 20251003
  2. BACTRIM [Concomitant]
     Active Substance: SULFAMETHOXAZOLE\TRIMETHOPRIM
     Indication: Prophylaxis
     Dosage: 800 MILLIGRAM (EVERY 72 HOURS)
     Route: 048
     Dates: start: 20250907
  3. BACTRIM [Concomitant]
     Active Substance: SULFAMETHOXAZOLE\TRIMETHOPRIM
     Dosage: 160 MILLIGRAM (EVERY 72 HOURS)
     Route: 048
     Dates: start: 2025, end: 2025
  4. ACYCLOVIR SODIUM [Concomitant]
     Active Substance: ACYCLOVIR SODIUM
     Indication: Antiviral prophylaxis
     Dosage: 400 MILLIGRAM (EVERY 24 HOURS)
     Route: 048
     Dates: start: 20250907

REACTIONS (16)
  - Neutropenic colitis [Recovered/Resolved]
  - Haemophagocytic lymphohistiocytosis [Not Recovered/Not Resolved]
  - Weight decreased [Not Recovered/Not Resolved]
  - Lymphoma [Not Recovered/Not Resolved]
  - Hepatitis [Not Recovered/Not Resolved]
  - Asthenia [Recovering/Resolving]
  - Diarrhoea [Recovered/Resolved]
  - Pyrexia [Recovered/Resolved]
  - Thrombocytopenia [Not Recovered/Not Resolved]
  - Anaemia [Not Recovered/Not Resolved]
  - Pneumonia fungal [Not Recovered/Not Resolved]
  - Abdominal distension [Not Recovered/Not Resolved]
  - Ocular icterus [Recovering/Resolving]
  - Hepatomegaly [Unknown]
  - Liver function test increased [Unknown]
  - Neutropenia [Recovered/Resolved]

NARRATIVE: CASE EVENT DATE: 20250101
